FAERS Safety Report 6899643-5 (Version None)
Quarter: 2010Q3

REPORT INFORMATION
  Report Type: 
  Country: None (occurrence: None)
  Receive Date: 20100708
  Receipt Date: 20100506
  Transmission Date: 20110219
  Serious: Yes (Other)
  Sender: FDA-Public Use
  Company Number: 2010046555

PATIENT
  Sex: Male

DRUGS (1)
  1. CHANTIX [Suspect]
     Indication: TOBACCO USER
     Dosage: 1 MG, 2X/DAY, ORAL
     Route: 048
     Dates: start: 20100302, end: 20100325

REACTIONS (4)
  - AGGRESSION [None]
  - AGITATION [None]
  - MANIA [None]
  - MOOD SWINGS [None]
